FAERS Safety Report 6328220-X (Version None)
Quarter: 2009Q3

REPORT INFORMATION
  Report Type: 
  Country: None (occurrence: None)
  Receive Date: 20090825
  Receipt Date: 20090219
  Transmission Date: 20100115
  Serious: No
  Sender: FDA-Public Use
  Company Number: US-ABBOTT-09P-163-0558589-00

PATIENT
  Sex: Female
  Weight: 81.72 kg

DRUGS (4)
  1. SYNTHROID [Suspect]
     Indication: HYPOTHYROIDISM
     Dates: start: 20040101, end: 20090201
  2. SYNTHROID [Suspect]
     Dates: start: 20090215
  3. PROTONIX [Concomitant]
     Indication: GASTROOESOPHAGEAL REFLUX DISEASE
     Dates: start: 20090205
  4. PROTONIX [Concomitant]
     Dates: end: 20090201

REACTIONS (1)
  - VULVOVAGINAL BURNING SENSATION [None]
